FAERS Safety Report 7641227-5 (Version None)
Quarter: 2011Q3

REPORT INFORMATION
  Report Type: 
  Country: None (occurrence: None)
  Receive Date: 20110728
  Receipt Date: 20110725
  Transmission Date: 20111222
  Serious: Yes (Death, Other)
  Sender: FDA-Public Use
  Company Number: PHHY2011NZ23127

PATIENT
  Sex: Male

DRUGS (5)
  1. VALPROATE SODIUM [Concomitant]
     Dosage: 200 MG, MANE
     Route: 048
  2. CLOZAPINE [Suspect]
     Indication: SCHIZOPHRENIA
     Dosage: 800 MG,
     Route: 048
     Dates: start: 20021106
  3. QUETIAPINE [Concomitant]
     Dosage: 50 MG, NOCTE
     Route: 048
     Dates: end: 20061101
  4. ASPIRIN [Concomitant]
     Dosage: 100 MG, MANE
     Route: 048
     Dates: end: 20060101
  5. CLOZAPINE [Suspect]
     Dosage: 600 MG, 250 MG MANE AND 350 MG NOCTE
     Dates: start: 20090201

REACTIONS (4)
  - CONVULSION [None]
  - EPILEPSY [None]
  - OVERDOSE [None]
  - ANTIPSYCHOTIC DRUG LEVEL ABOVE THERAPEUTIC [None]
